FAERS Safety Report 4662087-0 (Version None)
Quarter: 2005Q2

REPORT INFORMATION
  Report Type: 
  Country: None (occurrence: None)
  Receive Date: 20050516
  Receipt Date: 20050412
  Transmission Date: 20051028
  Serious: Yes (Hospitalization)
  Sender: FDA-Public Use
  Company Number: US-NOVOPROD-243495

PATIENT
  Age: 48 Year
  Sex: Male
  Weight: 95 kg

DRUGS (8)
  1. NOVOLOG [Suspect]
     Indication: INSULIN-REQUIRING TYPE II DIABETES MELLITUS
     Dosage: SLIDING SCALE IU, QD
     Route: 058
     Dates: start: 20040101
  2. CLONIDINE [Concomitant]
     Indication: HYPERTENSION
  3. PROGRAF [Concomitant]
     Indication: RENAL TRANSPLANT
  4. CELLCEPT [Concomitant]
     Indication: RENAL TRANSPLANT
  5. NOVOLIN N INNOLET [Concomitant]
     Indication: INSULIN-REQUIRING TYPE II DIABETES MELLITUS
  6. LANTUS [Concomitant]
     Indication: INSULIN-REQUIRING TYPE II DIABETES MELLITUS
  7. NORVASC [Concomitant]
     Indication: HYPERTENSION
  8. METOPROLOL TARTRATE [Concomitant]
     Indication: HYPERTENSION

REACTIONS (4)
  - NASOPHARYNGITIS [None]
  - NAUSEA [None]
  - POOR QUALITY DRUG ADMINISTERED [None]
  - VOMITING [None]
